FAERS Safety Report 19201024 (Version 1)
Quarter: 2021Q2

REPORT INFORMATION
  Report Type: Spontaneous
  Country: IL (occurrence: IL)
  Receive Date: 20210430
  Receipt Date: 20210430
  Transmission Date: 20210717
  Serious: Yes (Hospitalization)
  Sender: FDA-Public Use
  Company Number: IL-VERTEX PHARMACEUTICALS-2021-006681

PATIENT
  Sex: Male

DRUGS (1)
  1. TRIKAFTA [Suspect]
     Active Substance: ELEXACAFTOR\IVACAFTOR\TEZACAFTOR
     Indication: CYSTIC FIBROSIS
     Dosage: UNK
     Route: 048
     Dates: start: 20210406

REACTIONS (4)
  - Lymphadenitis [Unknown]
  - Dyspepsia [Unknown]
  - Hepatic enzyme abnormal [Unknown]
  - Infrequent bowel movements [Unknown]

NARRATIVE: CASE EVENT DATE: 202104
